FAERS Safety Report 4456170-2 (Version None)
Quarter: 2004Q3

REPORT INFORMATION
  Report Type: 
  Country: None (occurrence: None)
  Receive Date: 20040920
  Receipt Date: 20040906
  Transmission Date: 20050211
  Serious: Yes (Hospitalization)
  Sender: FDA-Public Use
  Company Number: 033-0981-M0100599

PATIENT
  Sex: 0

DRUGS (1)
  1. ATORVASTATIN CALCIUM [Suspect]
     Indication: ILL-DEFINED DISORDER
     Dosage: (40 MG)

REACTIONS (1)
  - MUSCLE RUPTURE [None]
